FAERS Safety Report 13261932 (Version 3)
Quarter: 2017Q1

REPORT INFORMATION
  Report Type: Report from Study
  Country: RU (occurrence: RU)
  Receive Date: 20170222
  Receipt Date: 20170317
  Transmission Date: 20170428
  Serious: Yes (Other)
  Sender: FDA-Public Use
  Company Number: RU-BIOGEN-2017BI00355439

PATIENT
  Age: 40 Year
  Sex: Female
  Weight: 52.3 kg

DRUGS (5)
  1. ACETYLCYSTEINE. [Concomitant]
     Active Substance: ACETYLCYSTEINE
     Indication: BRONCHITIS
     Route: 048
     Dates: start: 20170116, end: 20170126
  2. LORATADINE. [Concomitant]
     Active Substance: LORATADINE
     Indication: RASH
     Route: 048
     Dates: start: 20170205, end: 20170205
  3. DACLIZUMAB HYP [Suspect]
     Active Substance: DACLIZUMAB
     Indication: MULTIPLE SCLEROSIS
     Route: 058
     Dates: start: 20140114, end: 20170111
  4. DICYCLOVERINE [Concomitant]
     Active Substance: DICYCLOMINE HYDROCHLORIDE
     Indication: HEADACHE
     Route: 048
     Dates: start: 20170205, end: 20170205
  5. CEFTRIAXONE. [Concomitant]
     Active Substance: CEFTRIAXONE
     Indication: BRONCHITIS
     Route: 048
     Dates: start: 20170116, end: 20170126

REACTIONS (1)
  - Toxic skin eruption [Recovered/Resolved]

NARRATIVE: CASE EVENT DATE: 20170205
